FAERS Safety Report 18047117 (Version 1)
Quarter: 2020Q3

REPORT INFORMATION
  Report Type: Spontaneous
  Country: GB (occurrence: GB)
  Receive Date: 20200721
  Receipt Date: 20200721
  Transmission Date: 20201103
  Serious: Yes (Other)
  Sender: FDA-Public Use
  Company Number: GB-TEVA-2020-GB-1802995

PATIENT
  Age: 63 Year
  Sex: Female
  Weight: 61 kg

DRUGS (16)
  1. TEMAZEPAM. [Concomitant]
     Active Substance: TEMAZEPAM
     Dosage: AT NIGHT. KEEP USE TO A MINIMUM, CONTINUE REDUCTION AS DISCUSSED, UNIT DOSE: 1 DF
     Dates: start: 20200527
  2. QVAR [Concomitant]
     Active Substance: BECLOMETHASONE DIPROPIONATE
     Dosage: ATLERNATIV...  (UNIT DOSE: 4 DF)
     Route: 055
     Dates: start: 20200414, end: 20200603
  3. RAMIPRIL. [Concomitant]
     Active Substance: RAMIPRIL
     Dosage: 1 DF
     Dates: start: 20200128
  4. CLOPIDOGREL [Concomitant]
     Active Substance: CLOPIDOGREL BISULFATE
     Dosage: 1 DF
     Dates: start: 20200128
  5. MIRTAZAPINE. [Concomitant]
     Active Substance: MIRTAZAPINE
     Dosage: 1 DOSAGE FORMS DAILY; AT NIGHT.
     Dates: start: 20200128
  6. AMITRIPTYLINE HYDROCHLORIDE. [Concomitant]
     Active Substance: AMITRIPTYLINE HYDROCHLORIDE
     Dosage: 1 DOSAGE FORMS DAILY; EVERY NIGHT.
     Dates: start: 20200128
  7. GLYCERYL TRINITRATE [Concomitant]
     Active Substance: NITROGLYCERIN
     Dosage: 1 DF
     Route: 060
     Dates: start: 20200128
  8. MONOMIL XL [Concomitant]
     Active Substance: ISOSORBIDE MONONITRATE
     Dosage: .5 DOSAGE FORMS DAILY; IN THE MORNING.
     Dates: start: 20200128
  9. LANSOPRAZOLE. [Concomitant]
     Active Substance: LANSOPRAZOLE
     Dosage: 1 DF
     Dates: start: 20200128
  10. KELHALE [Concomitant]
     Dosage: 4 DF
     Route: 055
     Dates: start: 20200128
  11. PROPRANOLOL [Concomitant]
     Active Substance: PROPRANOLOL HYDROCHLORIDE
     Dosage: TAKE ONE DAILY FOR 1 WEEK INCREASE TO ONE TWICE...
     Dates: start: 20200128
  12. ROPINIROLE. [Suspect]
     Active Substance: ROPINIROLE
     Dosage: 250 MICROGRAM DAILY; AT NIGHT.
     Dates: start: 20200529
  13. COCODAMOL [Concomitant]
     Active Substance: ACETAMINOPHEN\CODEINE PHOSPHATE
     Indication: MIGRAINE
     Dosage: AT THE START OF A MIGRAINE ATTACK, KEEP USE TO A MINIMUM, UNIT DOSE: 2 DF
     Dates: start: 20200527, end: 20200608
  14. BETAHISTINE [Concomitant]
     Active Substance: BETAHISTINE
     Indication: DIZZINESS
     Dosage: 3 DF
     Dates: start: 20200331
  15. SALBUTAMOL [Concomitant]
     Active Substance: ALBUTEROL
     Dosage: 1?2 PUFFS.
     Dates: start: 20200128
  16. SALMETEROL [Concomitant]
     Active Substance: SALMETEROL
     Dosage: PUFFS, 4 DF
     Dates: start: 20200128

REACTIONS (1)
  - Parosmia [Recovered/Resolved]
